FAERS Safety Report 8782846 (Version 2)
Quarter: 2012Q4

REPORT INFORMATION
  Report Type: Report from Study
  Country: DE (occurrence: DE)
  Receive Date: 20120913
  Receipt Date: 20120924
  Transmission Date: 20130627
  Serious: Yes (Death)
  Sender: FDA-Public Use
  Company Number: DE-ACTELION-A-US2012-71223

PATIENT
  Age: 76 Year
  Sex: Female

DRUGS (3)
  1. VENTAVIS [Suspect]
     Indication: PULMONARY ARTERIAL HYPERTENSION
     Dosage: 2.5 mcg, 10 mcg daily total
     Route: 055
     Dates: start: 20120516
  2. SILDENAFIL [Concomitant]
  3. AMBRISENTAN [Concomitant]

REACTIONS (1)
  - Death [Fatal]
